FAERS Safety Report 4465512-3 (Version None)
Quarter: 2004Q4

REPORT INFORMATION
  Report Type: 
  Country: None (occurrence: None)
  Receive Date: 20041004
  Receipt Date: 20031027
  Transmission Date: 20050328
  Serious: No
  Sender: FDA-Public Use
  Company Number: US-GLAXOSMITHKLINE-A0431726A

PATIENT
  Age: 79 Year
  Sex: Female

DRUGS (2)
  1. IMITREX [Suspect]
     Indication: MIGRAINE
     Dosage: 1SPR AS REQUIRED
     Route: 045
     Dates: start: 20030905, end: 20030908
  2. FIORICET W/ CODEINE [Concomitant]

REACTIONS (1)
  - DRUG INEFFECTIVE [None]
